FAERS Safety Report 5636230-0 (Version None)
Quarter: 2008Q1

REPORT INFORMATION
  Report Type: 
  Country: None (occurrence: None)
  Receive Date: 20080220
  Receipt Date: 20080220
  Transmission Date: 20080703
  Serious: Yes (Death)
  Sender: FDA-Public Use
  Company Number: None

PATIENT
  Age: 54 Year
  Sex: Male
  Weight: 68.9467 kg

DRUGS (2)
  1. APROTININ [Suspect]
     Indication: AORTIC VALVE REPLACEMENT
     Dosage: 50 ML/HR IV 20 MIU IV X 1 PUMP PRIME 2 MILL.KIU - 200 ML
     Route: 042
     Dates: start: 20060824
  2. APROTININ [Suspect]
     Indication: CORONARY ARTERY BYPASS
     Dosage: 50 ML/HR IV 20 MIU IV X 1 PUMP PRIME 2 MILL.KIU - 200 ML
     Route: 042
     Dates: start: 20060824

REACTIONS (5)
  - CORONARY ARTERY THROMBOSIS [None]
  - GRAFT THROMBOSIS [None]
  - HYPOTENSION [None]
  - NO THERAPEUTIC RESPONSE [None]
  - VENTRICULAR HYPOKINESIA [None]
